FAERS Safety Report 23572844 (Version 1)
Quarter: 2024Q1

REPORT INFORMATION
  Report Type: Spontaneous
  Country: US (occurrence: US)
  Receive Date: 20240227
  Receipt Date: 20240227
  Transmission Date: 20240409
  Serious: No
  Sender: FDA-Public Use
  Company Number: US-INCYTE CORPORATION-2023IN013182

PATIENT

DRUGS (1)
  1. JAKAFI [Suspect]
     Active Substance: RUXOLITINIB
     Dosage: 5 MILLIGRAM (1 TABLET BID ON TUES, THUR AND 1 TABLET QD ON MON, WED, FRI, SAT, SUN)
     Route: 048

REACTIONS (1)
  - Product dose omission issue [Unknown]
